FAERS Safety Report 5807284-3 (Version None)
Quarter: 2008Q3

REPORT INFORMATION
  Report Type: 
  Country: None (occurrence: None)
  Receive Date: 20080711
  Receipt Date: 20080709
  Transmission Date: 20090109
  Serious: Yes (Life-Threatening)
  Sender: FDA-Public Use
  Company Number: JP-ASTRAZENECA-2008AP04967

PATIENT
  Age: 58 Year
  Sex: Male
  Weight: 100 kg

DRUGS (6)
  1. XYLOCAINE [Suspect]
     Dosage: FOR 10 MINUTES
     Route: 042
     Dates: start: 20080621, end: 20080621
  2. ANPLAG [Concomitant]
     Route: 048
     Dates: start: 20080606
  3. CYANOCOBALAMIN [Concomitant]
     Route: 048
     Dates: start: 20080606
  4. CYTOTEC [Concomitant]
     Route: 048
     Dates: start: 20080617
  5. BAYLOTENSIN [Concomitant]
     Route: 048
  6. LENIMEC [Concomitant]
     Route: 048

REACTIONS (2)
  - BLOOD PRESSURE INCREASED [None]
  - TACHYCARDIA [None]
